FAERS Safety Report 4399636-6 (Version None)
Quarter: 2004Q3

REPORT INFORMATION
  Report Type: 
  Country: None (occurrence: None)
  Receive Date: 20040712
  Receipt Date: 20040628
  Transmission Date: 20050211
  Serious: Yes (Life-Threatening, Hospitalization, Other)
  Sender: FDA-Public Use
  Company Number: 00-11-0599

PATIENT
  Age: 77 Year
  Sex: Female

DRUGS (6)
  1. PROGLYCEM [Suspect]
     Indication: INSULINOMA
     Dosage: SEE IMAGE
     Route: 048
     Dates: start: 19970615, end: 20000901
  2. PROGLYCEM [Suspect]
     Indication: INSULINOMA
     Dosage: SEE IMAGE
     Route: 048
     Dates: start: 20000901
  3. HALDOL [Suspect]
     Indication: HALLUCINATION
     Dosage: 30 DROPS ORAL
     Route: 048
  4. HALDOL [Suspect]
     Indication: PSYCHOTIC DISORDER
     Dosage: 30 DROPS ORAL
     Route: 048
  5. PRAXILENE [Concomitant]
  6. FONZYLANE [Concomitant]

REACTIONS (7)
  - DEHYDRATION [None]
  - DRUG INTERACTION [None]
  - HYPERGLYCAEMIA [None]
  - KETOACIDOSIS [None]
  - KETOSIS [None]
  - OVERDOSE [None]
  - RENAL FAILURE [None]
